FAERS Safety Report 10363286 (Version 1)
Quarter: 2014Q1

REPORT INFORMATION
  Report Type: Spontaneous
  Country: US (occurrence: None)
  Receive Date: 20140306
  Receipt Date: 20140306
  Transmission Date: 20141002
  Serious: Yes (Hospitalization)
  Sender: FDA-Public Use
  Company Number: 163-21880-13074633

PATIENT
  Age: 71 Year
  Sex: Male

DRUGS (9)
  1. REVLIMID(LENALIDOMIDE)(10 MILLIGRAM, CAPSULES) [Suspect]
     Indication: PLASMA CELL MYELOMA
     Dosage: 10 MG, 21 IN 21 D
     Route: 048
     Dates: start: 20130507
  2. ACYCLOVIR(ACICLOVIR)(UNKNOWN) [Concomitant]
  3. ALLOPURINOL(ALLOPURINOL)(UNKNOWN) [Concomitant]
  4. ALPRAZOLAM(ALPRAZOLAM)(UNKNOWN) [Concomitant]
  5. CALTRATE 600(CALCIUM CARBONATE)(UNKNOWN) [Concomitant]
  6. DEXAMETHASONE(DEXAMETHASONE)(UNKNOWN) [Concomitant]
  7. FUROSEMIDE(FUROSEMIDE)(UNKNOWN) [Concomitant]
  8. HYDROCODONE/ACETAMINOPHEN(REMEDEINE)(UNKNOWN) [Concomitant]
  9. HYDROMORPHONE HCL(HYDROMORPHONE HYDROCHLORIDE)(UNKNOWN) [Concomitant]

REACTIONS (1)
  - Pain [None]
